FAERS Safety Report 5625752-4 (Version None)
Quarter: 2007Q4

REPORT INFORMATION
  Report Type: 
  Country: None (occurrence: None)
  Receive Date: 20071210
  Receipt Date: 20071210
  Transmission Date: 20080405
  Serious: Yes (Other)
  Sender: FDA-Public Use
  Company Number: None

PATIENT
  Age: 52 Year
  Sex: Female
  Weight: 61.2356 kg

DRUGS (2)
  1. REDI-CAT [Suspect]
     Indication: POSITRON EMISSION TOMOGRAM
     Dosage: 1 BOTTLE 1X EA TEST PO JUNE ONE TIME
     Route: 048
     Dates: start: 20070601
  2. INJECTION PRE-PET SCAN [Suspect]
     Indication: COMPUTERISED TOMOGRAM
     Dosage: 1X EA TEST IV DECEMBER ONE TIME
     Route: 042
     Dates: start: 20071201

REACTIONS (4)
  - INFUSION RELATED REACTION [None]
  - MIGRAINE [None]
  - NAUSEA [None]
  - VOMITING [None]
